FAERS Safety Report 22064246 (Version 1)
Quarter: 2023Q1

REPORT INFORMATION
  Report Type: Other
  Country: CA (occurrence: CA)
  Receive Date: 20230306
  Receipt Date: 20230306
  Transmission Date: 20230418
  Serious: Yes (Other)
  Sender: FDA-Public Use
  Company Number: CA-APOTEX-2023AP004223

PATIENT
  Age: 51 Year
  Sex: Female

DRUGS (15)
  1. ATORVASTATIN [Suspect]
     Active Substance: ATORVASTATIN
     Indication: Xanthoma
     Dosage: UNK
     Route: 065
  2. ATORVASTATIN [Suspect]
     Active Substance: ATORVASTATIN
     Indication: Type IIa hyperlipidaemia
  3. EZETIMIBE [Suspect]
     Active Substance: EZETIMIBE
     Indication: Xanthoma
     Dosage: 10 MILLIGRAM
     Route: 065
  4. EZETIMIBE [Suspect]
     Active Substance: EZETIMIBE
     Indication: Type IIa hyperlipidaemia
     Dosage: UNK
     Route: 065
  5. PRAVASTATIN [Suspect]
     Active Substance: PRAVASTATIN
     Indication: Xanthoma
     Dosage: UNK
     Route: 065
  6. PRAVASTATIN [Suspect]
     Active Substance: PRAVASTATIN
     Indication: Type IIa hyperlipidaemia
     Dosage: 10 MILLIGRAM
     Route: 065
  7. ROSUVASTATIN [Suspect]
     Active Substance: ROSUVASTATIN
     Indication: Xanthoma
     Dosage: 10 MILLIGRAM
     Route: 048
  8. ROSUVASTATIN [Suspect]
     Active Substance: ROSUVASTATIN
     Indication: Type IIa hyperlipidaemia
  9. EVOLOCUMAB [Suspect]
     Active Substance: EVOLOCUMAB
     Indication: Xanthoma
     Dosage: 140 MILLIGRAM
     Route: 058
  10. EVOLOCUMAB [Suspect]
     Active Substance: EVOLOCUMAB
     Indication: Type IIa hyperlipidaemia
  11. COLESEVELAM HYDROCHLORIDE [Suspect]
     Active Substance: COLESEVELAM HYDROCHLORIDE
     Indication: Xanthoma
     Dosage: UNK
     Route: 065
  12. COLESEVELAM HYDROCHLORIDE [Suspect]
     Active Substance: COLESEVELAM HYDROCHLORIDE
     Indication: Type IIa hyperlipidaemia
  13. COLESEVELAM HYDROCHLORIDE [Suspect]
     Active Substance: COLESEVELAM HYDROCHLORIDE
     Indication: Xanthoma
     Dosage: UNK
     Route: 065
  14. COLESEVELAM HYDROCHLORIDE [Suspect]
     Active Substance: COLESEVELAM HYDROCHLORIDE
     Indication: Type IIa hyperlipidaemia
  15. REPATHA [Suspect]
     Active Substance: EVOLOCUMAB
     Indication: Type IIa hyperlipidaemia
     Dosage: UNK
     Route: 058

REACTIONS (2)
  - Drug intolerance [Unknown]
  - Drug ineffective [Unknown]
